FAERS Safety Report 5825352-7 (Version None)
Quarter: 2008Q3

REPORT INFORMATION
  Report Type: 
  Country: None (occurrence: None)
  Receive Date: 20080729
  Receipt Date: 20080714
  Transmission Date: 20090109
  Serious: Yes (Other)
  Sender: FDA-Public Use
  Company Number: JP-ASTRAZENECA-2008AP05444

PATIENT
  Age: 26517 Day
  Sex: Female
  Weight: 55 kg

DRUGS (10)
  1. ESOMEPRAZOLE [Suspect]
     Route: 048
     Dates: start: 20080401, end: 20080626
  2. MOHRUS TAPE [Concomitant]
     Indication: SPINAL COLUMN STENOSIS
     Route: 062
     Dates: start: 20010215
  3. OPALMON [Concomitant]
     Indication: SPINAL COLUMN STENOSIS
     Route: 048
     Dates: start: 20050101
  4. LOXONIN [Concomitant]
     Indication: OSTEOARTHRITIS
     Route: 048
     Dates: start: 20070417
  5. SUVENYL [Concomitant]
     Indication: OSTEOARTHRITIS
     Route: 065
     Dates: start: 20070510
  6. URSO 250 [Concomitant]
     Indication: HEPATIC STEATOSIS
     Route: 048
     Dates: start: 20070913
  7. LAXOBERON [Concomitant]
     Indication: CONSTIPATION
     Route: 048
     Dates: start: 20070913
  8. AMLODIN [Concomitant]
     Indication: HYPERTENSION
     Route: 048
     Dates: start: 20071207
  9. NU-LOTAN [Concomitant]
     Indication: HYPERTENSION
     Route: 048
     Dates: start: 20071207
  10. NATRIX [Concomitant]
     Indication: HYPERTENSION
     Route: 048
     Dates: start: 20071207

REACTIONS (1)
  - GASTRIC CANCER [None]
